FAERS Safety Report 20824793 (Version 1)
Quarter: 2022Q2

REPORT INFORMATION
  Report Type: Spontaneous
  Country: FR (occurrence: FR)
  Receive Date: 20220513
  Receipt Date: 20220513
  Transmission Date: 20220721
  Serious: Yes (Other)
  Sender: FDA-Public Use
  Company Number: FR-AFSSAPS-PB20221358

PATIENT
  Age: 40 Year
  Sex: Male

DRUGS (1)
  1. TRAMADOL [Suspect]
     Active Substance: TRAMADOL
     Indication: Pain
     Dosage: UNK (400 TO 900 MG/D)
     Route: 048
     Dates: start: 2014

REACTIONS (1)
  - Drug dependence [Not Recovered/Not Resolved]
